FAERS Safety Report 15308373 (Version 2)
Quarter: 2018Q4

REPORT INFORMATION
  Report Type: Spontaneous
  Country: US (occurrence: US)
  Receive Date: 20180822
  Receipt Date: 20181003
  Transmission Date: 20190204
  Serious: Yes (Hospitalization)
  Sender: FDA-Public Use
  Company Number: US-NOVOPROD-616613

PATIENT
  Age: 37 Year
  Sex: Female
  Weight: 153.29 kg

DRUGS (2)
  1. NOVOLIN R [Suspect]
     Active Substance: INSULIN HUMAN
     Indication: TYPE 2 DIABETES MELLITUS
     Dosage: 40 UNITS IN THE MORNING AND 70 UNITS AT BEDTIME
     Route: 058
     Dates: end: 20180621
  2. NOVOLIN R [Suspect]
     Active Substance: INSULIN HUMAN
     Indication: DIABETES MELLITUS INADEQUATE CONTROL
     Dosage: 50 UNITS IN THE MORNING AND 65 UNITS AT BEDTIME
     Route: 058
     Dates: start: 20180622

REACTIONS (9)
  - Back pain [Unknown]
  - Musculoskeletal disorder [Unknown]
  - Hypertension [Recovering/Resolving]
  - Furuncle [Unknown]
  - Cardiac disorder [Unknown]
  - Treatment noncompliance [Unknown]
  - Glycosylated haemoglobin increased [Unknown]
  - Blood glucose increased [Recovering/Resolving]
  - Chest pain [Unknown]

NARRATIVE: CASE EVENT DATE: 20180608
